FAERS Safety Report 6148417-1 (Version None)
Quarter: 2009Q2

REPORT INFORMATION
  Report Type: 
  Country: None (occurrence: None)
  Receive Date: 20090406
  Receipt Date: 20090406
  Transmission Date: 20091009
  Serious: Yes (Other)
  Sender: FDA-Public Use
  Company Number: None

PATIENT
  Age: 7 Year
  Sex: Female
  Weight: 39.4629 kg

DRUGS (1)
  1. METHYLIN [Suspect]
     Indication: ATTENTION DEFICIT/HYPERACTIVITY DISORDER
     Dosage: 2 1/2 ML BY MOUTH IN MORNING
     Route: 065
     Dates: start: 20090309, end: 20090402

REACTIONS (2)
  - ABDOMINAL PAIN UPPER [None]
  - VOMITING [None]
